FAERS Safety Report 23531618 (Version 2)
Quarter: 2024Q2

REPORT INFORMATION
  Report Type: Spontaneous
  Country: US (occurrence: US)
  Receive Date: 20240216
  Receipt Date: 20240417
  Transmission Date: 20240716
  Serious: No
  Sender: FDA-Public Use
  Company Number: US-LUPIN PHARMACEUTICALS INC.-2024-01082

PATIENT

DRUGS (1)
  1. TIOTROPIUM BROMIDE [Suspect]
     Active Substance: TIOTROPIUM BROMIDE
     Indication: Asthma
     Dosage: UNK, QD (ONE CAPSULE ONCE A DAY)
     Dates: start: 20240204

REACTIONS (4)
  - Wrong technique in device usage process [Unknown]
  - Device mechanical issue [Unknown]
  - Device difficult to use [Unknown]
  - No adverse event [Unknown]
